FAERS Safety Report 16364597 (Version 3)
Quarter: 2019Q3

REPORT INFORMATION
  Report Type: Report from Study
  Country: None (occurrence: US)
  Receive Date: 20190529
  Receipt Date: 20190905
  Transmission Date: 20191004
  Serious: Yes (Other)
  Sender: FDA-Public Use
  Company Number: US-ABBVIE-19K-163-2795182-00

PATIENT
  Age: 70 Year
  Sex: Female
  Weight: 87.62 kg

DRUGS (3)
  1. ATORVASTATIN [Concomitant]
     Active Substance: ATORVASTATIN
     Indication: PRODUCT USED FOR UNKNOWN INDICATION
  2. FLUSOME [Concomitant]
     Indication: PRODUCT USED FOR UNKNOWN INDICATION
  3. HUMIRA [Suspect]
     Active Substance: ADALIMUMAB
     Indication: CROHN^S DISEASE
     Route: 058

REACTIONS (9)
  - Intestinal polyp [Recovering/Resolving]
  - Venous operation [Recovered/Resolved]
  - Contusion [Unknown]
  - Flatulence [Unknown]
  - Peripheral swelling [Unknown]
  - Dizziness [Unknown]
  - Muscle spasms [Unknown]
  - Vein disorder [Not Recovered/Not Resolved]
  - Erythema [Unknown]
